FAERS Safety Report 17030688 (Version 1)
Quarter: 2019Q4

REPORT INFORMATION
  Report Type: Spontaneous
  Country: CN (occurrence: CN)
  Receive Date: 20191114
  Receipt Date: 20191114
  Transmission Date: 20200122
  Serious: Yes (Hospitalization, Other)
  Sender: FDA-Public Use
  Company Number: CN-PFIZER INC-2019485288

PATIENT
  Age: 19 Year
  Sex: Female
  Weight: 48.6 kg

DRUGS (3)
  1. MEI SHI YU [Concomitant]
     Indication: POOR QUALITY SLEEP
     Dosage: 75 MG, 1X/DAY
     Route: 048
     Dates: start: 20190710, end: 20191028
  2. EFEXOR XR [Suspect]
     Active Substance: VENLAFAXINE HYDROCHLORIDE
     Indication: ANTIDEPRESSANT THERAPY
     Dosage: 150 MG, 1X/DAY
     Route: 048
     Dates: start: 20190715, end: 20191028
  3. DEPAKINE [VALPROATE SODIUM] [Concomitant]
     Active Substance: VALPROATE SODIUM
     Indication: AFFECT LABILITY
     Dosage: 0.5 G, 2X/DAY
     Route: 048
     Dates: start: 20190710, end: 20191028

REACTIONS (12)
  - Syncope [Recovered/Resolved]
  - Ataxia [Recovered/Resolved]
  - Muscular weakness [Recovered/Resolved]
  - Memory impairment [Recovered/Resolved]
  - Restlessness [Recovered/Resolved]
  - Tremor [Recovered/Resolved]
  - Fatigue [Recovered/Resolved]
  - Gait disturbance [Recovered/Resolved]
  - Speech disorder [Recovered/Resolved]
  - Dizziness [Recovered/Resolved]
  - Asthenia [Recovered/Resolved]
  - Fall [Recovered/Resolved]

NARRATIVE: CASE EVENT DATE: 20191027
